FAERS Safety Report 4531767-X (Version None)
Quarter: 2004Q4

REPORT INFORMATION
  Report Type: 
  Country: None (occurrence: None)
  Receive Date: 20041220
  Receipt Date: 20041209
  Transmission Date: 20050328
  Serious: Yes (Other)
  Sender: FDA-Public Use
  Company Number: US-ROCHE-389081

PATIENT
  Age: 47 Year
  Sex: Female

DRUGS (2)
  1. PEG-INTERFERON ALFA NOS [Suspect]
     Indication: DRUG USE FOR UNKNOWN INDICATION
     Route: 065
     Dates: start: 20040215, end: 20040311
  2. RIBAVIRIN [Suspect]
     Indication: DRUG USE FOR UNKNOWN INDICATION
     Route: 065
     Dates: start: 20040215, end: 20040311

REACTIONS (3)
  - BLINDNESS [None]
  - RETINAL EXUDATES [None]
  - RETINAL INFARCTION [None]
